FAERS Safety Report 19495829 (Version 2)
Quarter: 2021Q3

REPORT INFORMATION
  Report Type: Spontaneous
  Country: JP (occurrence: JP)
  Receive Date: 20210706
  Receipt Date: 20210824
  Transmission Date: 20211014
  Serious: Yes (Hospitalization, Other)
  Sender: FDA-Public Use
  Company Number: JP-ASTELLAS-2021JP012803

PATIENT
  Age: 16 Year
  Sex: Female
  Weight: 36 kg

DRUGS (13)
  1. FOSCARNET [Suspect]
     Active Substance: FOSCARNET
     Indication: TRANSPLANTATION COMPLICATION
     Dosage: UNK UNK, UNKNOWN FREQ.
     Route: 065
  2. PREDNISOLONE. [Concomitant]
     Active Substance: PREDNISOLONE
     Indication: TRANSPLANTATION COMPLICATION
     Dosage: UNK UNK, UNKNOWN FREQ.
     Route: 065
  3. JADENU [Suspect]
     Active Substance: DEFERASIROX
     Dosage: 10 MG/KG/DAY, UNKNOWN FREQ.
     Route: 048
  4. JADENU [Suspect]
     Active Substance: DEFERASIROX
     Dosage: 12 MG/KG/DAY, UNKNOWN FREQ.
     Route: 048
  5. TACROLIMUS. [Suspect]
     Active Substance: TACROLIMUS
     Indication: GRAFT VERSUS HOST DISEASE
     Dosage: UNK UNK, UNKNOWN FREQ.
     Route: 065
  6. EXJADE [Suspect]
     Active Substance: DEFERASIROX
     Indication: IRON OVERLOAD
     Dosage: UNK UNK, UNKNOWN FREQ.
     Route: 048
  7. JADENU [Suspect]
     Active Substance: DEFERASIROX
     Dosage: 14 MG/KG/DAY, UNKNOWN FREQ.
     Route: 048
  8. DEFEROXAMINE MESILATE [Concomitant]
     Active Substance: DEFEROXAMINE MESYLATE
     Indication: IRON OVERLOAD
     Dosage: UNK UNK, UNKNOWN FREQ.
     Route: 065
  9. EXJADE [Suspect]
     Active Substance: DEFERASIROX
     Dosage: UNK UNK, UNKNOWN FREQ.
     Route: 048
  10. JADENU [Suspect]
     Active Substance: DEFERASIROX
     Dosage: UNK UNK, UNKNOWN FREQ.
     Route: 048
  11. JADENU [Suspect]
     Active Substance: DEFERASIROX
     Indication: IRON OVERLOAD
     Dosage: UNK UNK, UNKNOWN FREQ.
     Route: 048
  12. JADENU [Suspect]
     Active Substance: DEFERASIROX
     Dosage: 20 MG/KG/DAY, UNKNOWN FREQ.
     Route: 048
  13. GANCICLOVIR. [Concomitant]
     Active Substance: GANCICLOVIR
     Indication: TRANSPLANTATION COMPLICATION
     Dosage: UNK UNK, UNKNOWN FREQ.
     Route: 065

REACTIONS (1)
  - Fanconi syndrome [Recovered/Resolved]
